FAERS Safety Report 6555868-X (Version None)
Quarter: 2010Q1

REPORT INFORMATION
  Report Type: 
  Country: None (occurrence: None)
  Receive Date: 20100125
  Receipt Date: 20100120
  Transmission Date: 20100710
  Serious: Yes (Hospitalization)
  Sender: FDA-Public Use
  Company Number: 2009SP034368

PATIENT
  Age: 26 Year
  Sex: Female
  Weight: 46.3 kg

DRUGS (2)
  1. DESOGESTREL AND ETHINYL ESTRADIOL [Suspect]
     Indication: DYSMENORRHOEA
     Dosage: 1 DF; QD; PO
     Route: 048
     Dates: start: 20090901, end: 20091009
  2. THYRADIN [Concomitant]

REACTIONS (5)
  - CARDIAC FAILURE [None]
  - DIARRHOEA [None]
  - DRUG HYPERSENSITIVITY [None]
  - PNEUMONIA [None]
  - PULMONARY OEDEMA [None]
